FAERS Safety Report 15667882 (Version 2)
Quarter: 2019Q1

REPORT INFORMATION
  Report Type: Spontaneous
  Country: US (occurrence: US)
  Receive Date: 20181128
  Receipt Date: 20190108
  Transmission Date: 20190417
  Serious: Yes (Hospitalization, Other)
  Sender: FDA-Public Use
  Company Number: US-JAZZ-2018-US-017311

PATIENT
  Age: 38 Year
  Sex: Male

DRUGS (2)
  1. PHENIBUT [Suspect]
     Active Substance: DIETARY SUPPLEMENT
     Indication: PRODUCT USED FOR UNKNOWN INDICATION
  2. XYREM [Suspect]
     Active Substance: SODIUM OXYBATE
     Indication: NARCOLEPSY
     Route: 048

REACTIONS (10)
  - Agitation [Recovered/Resolved]
  - Confusional state [Recovered/Resolved]
  - Somnolence [Recovered/Resolved]
  - Aggression [Not Recovered/Not Resolved]
  - Electrocardiogram QT prolonged [Unknown]
  - Hypertension [Not Recovered/Not Resolved]
  - Irritability [Recovered/Resolved]
  - Sinus tachycardia [Unknown]
  - Lethargy [Recovered/Resolved]
  - Blood creatine phosphokinase increased [Unknown]
